FAERS Safety Report 9385156 (Version 1)
Quarter: 2013Q3

REPORT INFORMATION
  Report Type: Spontaneous
  Country: US (occurrence: US)
  Receive Date: 20130705
  Receipt Date: 20130705
  Transmission Date: 20140515
  Serious: Yes (Other)
  Sender: FDA-Public Use
  Company Number: US-PFIZER INC-2013196732

PATIENT
  Age: 42 Year
  Sex: Female
  Weight: 90.7 kg

DRUGS (1)
  1. ALDACTONE [Suspect]
     Indication: VIRILISM
     Dosage: 50 MG, UNK

REACTIONS (3)
  - Clavicle fracture [Unknown]
  - Upper limb fracture [Unknown]
  - Hysterectomy [Unknown]
